FAERS Safety Report 7440146-7 (Version None)
Quarter: 2011Q2

REPORT INFORMATION
  Report Type: 
  Country: None (occurrence: None)
  Receive Date: 20110427
  Receipt Date: 20110414
  Transmission Date: 20111010
  Serious: Yes (Hospitalization)
  Sender: FDA-Public Use
  Company Number: US-ROCHE-772188

PATIENT
  Sex: Female

DRUGS (3)
  1. XELODA [Suspect]
     Route: 048
     Dates: start: 20080101
  2. XELODA [Suspect]
     Dosage: UNKNOWN QUANTITY OF CAPECITABINE FROM LOT X0071.THERAPY HELD FOR 6 WEEKS.
     Route: 048
     Dates: start: 20110110
  3. XELODA [Suspect]
     Dosage: 3-4 CYCLES CONSUMED. LOT NO: X0097
     Route: 048

REACTIONS (7)
  - TINNITUS [None]
  - NAUSEA [None]
  - MALAISE [None]
  - ABDOMINAL DISCOMFORT [None]
  - PRODUCT QUALITY ISSUE [None]
  - FEELING HOT [None]
  - EPIPLOIC APPENDAGITIS [None]
